FAERS Safety Report 9542990 (Version 1)
Quarter: 2013Q3

REPORT INFORMATION
  Report Type: Spontaneous
  Country: GB (occurrence: GB)
  Receive Date: 20130923
  Receipt Date: 20130923
  Transmission Date: 20140515
  Serious: Yes (Death)
  Sender: FDA-Public Use
  Company Number: GB-SANOFI-AVENTIS-2013SA092206

PATIENT
  Age: 67 Year
  Sex: Male
  Weight: 98 kg

DRUGS (30)
  1. RIFAMPICIN [Suspect]
     Indication: ENDOCARDITIS
     Route: 048
     Dates: start: 20130716, end: 20130820
  2. BENZYLPENICILLIN [Concomitant]
  3. VANCOMYCIN [Concomitant]
  4. GENTAMICIN [Concomitant]
  5. LANSOPRAZOLE [Concomitant]
  6. POTASSIUM CHLORIDE [Concomitant]
  7. ASPIRIN [Concomitant]
  8. BISOPROLOL [Concomitant]
  9. SPIRONOLACTONE [Concomitant]
  10. VITAMIN K [Concomitant]
  11. DALTEPARIN [Concomitant]
  12. LAXIDO [Concomitant]
  13. WHITE SOFT PARAFFIN [Concomitant]
  14. PARACETAMOL [Concomitant]
  15. ZOPICLONE [Concomitant]
  16. SENNA [Concomitant]
  17. ACIDEX [Concomitant]
  18. OXYNORM [Concomitant]
  19. AMIODARONE [Concomitant]
  20. MORPHINE [Concomitant]
  21. OMEPRAZOLE [Concomitant]
  22. SIMVASTATIN [Concomitant]
  23. METOPROLOL [Concomitant]
  24. FRUSEMIDE [Concomitant]
  25. CLOPIDOGREL [Concomitant]
  26. MELATONIN [Concomitant]
  27. IVABRADINE HYDROCHLORIDE [Concomitant]
  28. ATORVASTATIN [Concomitant]
  29. CIPROFLOXACIN [Concomitant]
  30. MEROPENEM [Concomitant]

REACTIONS (1)
  - Acute hepatic failure [Fatal]
